FAERS Safety Report 25747788 (Version 2)
Quarter: 2025Q4

REPORT INFORMATION
  Report Type: Spontaneous
  Country: US (occurrence: US)
  Receive Date: 20250901
  Receipt Date: 20251126
  Transmission Date: 20260117
  Serious: Yes (Other)
  Sender: ELI LILLY AND COMPANY
  Company Number: US-ELI_LILLY_AND_COMPANY-US202508028659

PATIENT
  Age: 98 Year
  Sex: Female

DRUGS (1)
  1. VERZENIO [Suspect]
     Active Substance: ABEMACICLIB
     Indication: Breast cancer
     Dosage: 50 MG, UNKNOWN
     Route: 048
     Dates: start: 20190220

REACTIONS (9)
  - Sepsis [Unknown]
  - Personality change [Not Recovered/Not Resolved]
  - Lack of empathy [Not Recovered/Not Resolved]
  - Stress [Not Recovered/Not Resolved]
  - Psychotic disorder [Unknown]
  - Tooth disorder [Unknown]
  - Frustration tolerance decreased [Unknown]
  - Aphasia [Unknown]
  - Asthenia [Unknown]
